FAERS Safety Report 24026253 (Version 3)
Quarter: 2024Q3

REPORT INFORMATION
  Report Type: Report from Study
  Country: RU (occurrence: RU)
  Receive Date: 20240628
  Receipt Date: 20240710
  Transmission Date: 20241017
  Serious: No
  Sender: ROCHE
  Company Number: RU-ROCHE-3519709

PATIENT
  Age: 29 Year
  Sex: Male
  Weight: 100.0 kg

DRUGS (2)
  1. ALECTINIB [Suspect]
     Active Substance: ALECTINIB
     Indication: Lung squamous cell carcinoma metastatic
     Route: 048
     Dates: start: 20230206
  2. ALECTINIB [Suspect]
     Active Substance: ALECTINIB
     Route: 048
     Dates: start: 20221031

REACTIONS (1)
  - Aspartate aminotransferase increased [Not Recovered/Not Resolved]

NARRATIVE: CASE EVENT DATE: 20231108
